FAERS Safety Report 21112548 (Version 1)
Quarter: 2022Q3

REPORT INFORMATION
  Report Type: Spontaneous
  Country: US (occurrence: None)
  Receive Date: 20220721
  Receipt Date: 20220721
  Transmission Date: 20221027
  Serious: Yes (Hospitalization)
  Sender: FDA-Public Use
  Company Number: None

PATIENT
  Age: 70 Year
  Sex: Male
  Weight: 78.9 kg

DRUGS (1)
  1. PAXLOVID [Suspect]
     Active Substance: NIRMATRELVIR\RITONAVIR
     Indication: COVID-19
     Dosage: 300 MG TWICE A DAY ORAL?
     Route: 048
     Dates: start: 20220719, end: 20220721

REACTIONS (3)
  - Lip swelling [None]
  - Secretion discharge [None]
  - Angioedema [None]

NARRATIVE: CASE EVENT DATE: 20220721
